FAERS Safety Report 10370223 (Version 1)
Quarter: 2014Q3

REPORT INFORMATION
  Report Type: Spontaneous
  Country: US (occurrence: US)
  Receive Date: 20140808
  Receipt Date: 20140808
  Transmission Date: 20150326
  Serious: No
  Sender: FDA-Public Use
  Company Number: US-009507513-1407USA013676

PATIENT
  Age: 24 Year
  Sex: Female
  Weight: 66.67 kg

DRUGS (3)
  1. IMPLANON [Suspect]
     Active Substance: ETONOGESTREL
     Indication: CONTRACEPTION
     Dosage: DOSE/FREQUENCY REPORTED AS 68 MG
     Route: 059
     Dates: start: 20130814
  2. ZOFRAN [Concomitant]
     Active Substance: ONDANSETRON HYDROCHLORIDE
     Dosage: UNK
  3. SERTRALINE HYDROCHLORIDE. [Concomitant]
     Active Substance: SERTRALINE HYDROCHLORIDE
     Dosage: UNK

REACTIONS (6)
  - Axillary mass [Unknown]
  - Device dislocation [Not Recovered/Not Resolved]
  - Device difficult to use [Not Recovered/Not Resolved]
  - Unintended pregnancy [Unknown]
  - Medical device complication [Not Recovered/Not Resolved]
  - Exposure during breast feeding [Unknown]

NARRATIVE: CASE EVENT DATE: 20130814
